FAERS Safety Report 13265766 (Version 1)
Quarter: 2017Q1

REPORT INFORMATION
  Report Type: Report from Study
  Country: VE (occurrence: VE)
  Receive Date: 20170223
  Receipt Date: 20170223
  Transmission Date: 20170428
  Serious: Yes (Death, Other)
  Sender: FDA-Public Use
  Company Number: PHHY2017VE028405

PATIENT
  Age: 82 Year
  Sex: Female

DRUGS (1)
  1. TASIGNA [Suspect]
     Active Substance: NILOTINIB
     Indication: CHRONIC MYELOID LEUKAEMIA
     Dosage: 800 MG, QD
     Route: 048
     Dates: start: 20150225

REACTIONS (7)
  - Blindness [Unknown]
  - Coma [Unknown]
  - Chronic myeloid leukaemia recurrent [Unknown]
  - Renal failure [Unknown]
  - Death [Fatal]
  - Oncologic complication [Unknown]
  - Diabetes mellitus [Unknown]

NARRATIVE: CASE EVENT DATE: 20170129
